FAERS Safety Report 20457748 (Version 1)
Quarter: 2022Q1

REPORT INFORMATION
  Report Type: Report from Study
  Country: US (occurrence: US)
  Receive Date: 20220210
  Receipt Date: 20220210
  Transmission Date: 20220424
  Serious: No
  Sender: FDA-Public Use
  Company Number: US-NOVARTISTESTPH-NVSC2022US028418

PATIENT
  Sex: Male

DRUGS (1)
  1. ENTRESTO [Suspect]
     Active Substance: SACUBITRIL\VALSARTAN
     Indication: Myocarditis infectious
     Dosage: 1 DOSAGE FORM, BID
     Route: 048
     Dates: start: 20220208

REACTIONS (4)
  - Wrong technique in product usage process [Unknown]
  - Drug intolerance [Unknown]
  - Hypotension [Unknown]
  - Product use in unapproved indication [Unknown]
